FAERS Safety Report 25697755 (Version 1)
Quarter: 2025Q3

REPORT INFORMATION
  Report Type: Spontaneous
  Country: US (occurrence: US)
  Receive Date: 20250819
  Receipt Date: 20250819
  Transmission Date: 20251020
  Serious: Yes (Other)
  Sender: CSL BEHRING
  Company Number: US-BEH-2025215724

PATIENT
  Age: 64 Year
  Sex: Female

DRUGS (24)
  1. HIZENTRA [Suspect]
     Active Substance: HUMAN IMMUNOGLOBULIN G
     Indication: Product used for unknown indication
     Dosage: 12 G, QW
     Route: 058
     Dates: start: 20241206
  2. HIZENTRA [Suspect]
     Active Substance: HUMAN IMMUNOGLOBULIN G
     Indication: Product used for unknown indication
     Dosage: 12 G, QW
     Route: 058
     Dates: start: 20241206
  3. ALREX [Concomitant]
     Active Substance: LOTEPREDNOL ETABONATE
  4. AZITHROMYCIN [Concomitant]
     Active Substance: AZITHROMYCIN
  5. CHOLESTYRAMINE [Concomitant]
     Active Substance: CHOLESTYRAMINE
  6. CLINDAMYCIN [Concomitant]
     Active Substance: CLINDAMYCIN
  7. EPINEPHRINE [Concomitant]
     Active Substance: EPINEPHRINE
  8. ESTRING [Concomitant]
     Active Substance: ESTRADIOL
  9. FLAREX [Concomitant]
     Active Substance: FLUOROMETHOLONE ACETATE
  10. FLUCONAZOLE [Concomitant]
     Active Substance: FLUCONAZOLE
  11. FLUTICASONE [Concomitant]
     Active Substance: FLUTICASONE
  12. HYDROXYCHLOROQUINE [Concomitant]
     Active Substance: HYDROXYCHLOROQUINE
  13. ITRACONAZOLE [Concomitant]
     Active Substance: ITRACONAZOLE
  14. LUMIGAN [Concomitant]
     Active Substance: BIMATOPROST
  15. LUNESTA [Concomitant]
     Active Substance: ESZOPICLONE
  16. METRONIDAZOLE [Concomitant]
     Active Substance: METRONIDAZOLE
  17. NYSTATIN [Concomitant]
     Active Substance: NYSTATIN
  18. PATADAY [Concomitant]
     Active Substance: OLOPATADINE HYDROCHLORIDE
  19. PREDNISONE [Concomitant]
     Active Substance: PREDNISONE
  20. PROAIR HFA [Concomitant]
     Active Substance: ALBUTEROL SULFATE
  21. RIFAMPIN [Concomitant]
     Active Substance: RIFAMPIN
  22. SULFACETAMIDE [Concomitant]
     Active Substance: SULFACETAMIDE
  23. TAZORAC [Concomitant]
     Active Substance: TAZAROTENE
  24. Transderm [Concomitant]

REACTIONS (2)
  - Drug ineffective [Not Recovered/Not Resolved]
  - Product dispensing issue [Not Recovered/Not Resolved]

NARRATIVE: CASE EVENT DATE: 20250605
